FAERS Safety Report 11081121 (Version 3)
Quarter: 2017Q4

REPORT INFORMATION
  Report Type: Spontaneous
  Country: FR (occurrence: FR)
  Receive Date: 20150501
  Receipt Date: 20171211
  Transmission Date: 20180320
  Serious: Yes (Other)
  Sender: FDA-Public Use
  Company Number: FR-SUN PHARMACEUTICAL INDUSTRIES LTD-2015RR-96506

PATIENT
  Age: 45 Year
  Sex: Female
  Weight: 100 kg

DRUGS (6)
  1. MIANSERIN [Concomitant]
     Active Substance: MIANSERIN
     Indication: BIPOLAR DISORDER
     Dosage: 40 MG, DAILY
  2. LITHIUM. [Concomitant]
     Active Substance: LITHIUM
     Indication: BIPOLAR DISORDER
     Dosage: 800 MG, DAILY, SUSTAINED RELEASE FORMULATION
     Route: 065
  3. LOXAPAC [Interacting]
     Active Substance: LOXAPINE SUCCINATE
     Indication: BIPOLAR DISORDER
  4. VALPROIC ACID. [Suspect]
     Active Substance: VALPROIC ACID
     Indication: BIPOLAR DISORDER
     Dosage: 500 MG, 12 UNITS/ DAY
     Route: 065
  5. LOXAPAC [Interacting]
     Active Substance: LOXAPINE SUCCINATE
     Indication: AGITATION
     Dosage: 300 MG, CUMULATIVE DOSE:300 MG
     Route: 065
  6. LORAZEPAM. [Concomitant]
     Active Substance: LORAZEPAM
     Indication: BIPOLAR DISORDER
     Dosage: 5 MG, DAILY, IN THREE DOSES
     Route: 065

REACTIONS (3)
  - Neuroleptic malignant syndrome [Recovering/Resolving]
  - Drug interaction [Recovering/Resolving]
  - Catatonia [Recovering/Resolving]
